FAERS Safety Report 6154909-1 (Version None)
Quarter: 2009Q2

REPORT INFORMATION
  Report Type: 
  Country: None (occurrence: None)
  Receive Date: 20090414
  Receipt Date: 20090406
  Transmission Date: 20091009
  Serious: Yes (Disabling)
  Sender: FDA-Public Use
  Company Number: IE-WYE-G03461009

PATIENT
  Sex: Female

DRUGS (1)
  1. PREMIQUE [Suspect]
     Dosage: UNKNOWN
     Dates: start: 20010101, end: 20040101

REACTIONS (6)
  - GENERAL PHYSICAL HEALTH DETERIORATION [None]
  - MUSCULAR WEAKNESS [None]
  - MUSCULOSKELETAL STIFFNESS [None]
  - MYALGIA [None]
  - NECK PAIN [None]
  - SKIN MASS [None]
